FAERS Safety Report 12486509 (Version 2)
Quarter: 2016Q3

REPORT INFORMATION
  Report Type: Spontaneous
  Country: ZA (occurrence: ZA)
  Receive Date: 20160621
  Receipt Date: 20160701
  Transmission Date: 20161109
  Serious: Yes (Hospitalization, Other)
  Sender: FDA-Public Use
  Company Number: ZA-ELI_LILLY_AND_COMPANY-ZA201606005308

PATIENT
  Age: 64 Year
  Sex: Male

DRUGS (2)
  1. CIALIS [Suspect]
     Active Substance: TADALAFIL
     Indication: ERECTILE DYSFUNCTION
     Dosage: 20 MG, UNKNOWN
     Route: 065
  2. CIALIS [Suspect]
     Active Substance: TADALAFIL
     Dosage: 5 MG, QD
     Route: 065

REACTIONS (7)
  - Penis disorder [Unknown]
  - Fall [Unknown]
  - Erectile dysfunction [Not Recovered/Not Resolved]
  - Coma [Unknown]
  - Urethral stenosis [Unknown]
  - Cerebral malaria [Unknown]
  - Urethral injury [Unknown]

NARRATIVE: CASE EVENT DATE: 201603
